FAERS Safety Report 25993388 (Version 1)
Quarter: 2025Q4

REPORT INFORMATION
  Report Type: Spontaneous
  Country: US (occurrence: US)
  Receive Date: 20251104
  Receipt Date: 20251104
  Transmission Date: 20260118
  Serious: Yes (Hospitalization, Other)
  Sender: NAARI PHARMA
  Company Number: US-NAARI PTE LIMITED-2025NP000067

PATIENT
  Age: 48 Year
  Sex: Female

DRUGS (1)
  1. LEVONORGESTREL AND ETHINYL ESTRADIOL [Suspect]
     Active Substance: ETHINYL ESTRADIOL\LEVONORGESTREL
     Indication: Post coital contraception
     Dosage: UNK
     Route: 048

REACTIONS (1)
  - Mesenteric vein thrombosis [Recovered/Resolved]
